FAERS Safety Report 6700064-6 (Version None)
Quarter: 2010Q2

REPORT INFORMATION
  Report Type: 
  Country: None (occurrence: None)
  Receive Date: 20100427
  Receipt Date: 20100427
  Transmission Date: 20101027
  Serious: Yes (Disabling)
  Sender: FDA-Public Use
  Company Number: None

PATIENT
  Sex: Female
  Weight: 109.7705 kg

DRUGS (1)
  1. TOPIRAMATE [Suspect]
     Indication: MIGRAINE
     Dates: start: 20100425

REACTIONS (4)
  - GLOSSODYNIA [None]
  - OROPHARYNGEAL PAIN [None]
  - SPEECH DISORDER [None]
  - SWELLING [None]
